FAERS Safety Report 8430686-6 (Version None)
Quarter: 2012Q2

REPORT INFORMATION
  Report Type: 
  Country: None (occurrence: None)
  Receive Date: 20120323
  Receipt Date: 20110802
  Transmission Date: 20120825
  Serious: Yes (Hospitalization)
  Sender: FDA-Public Use
  Company Number: 163-21880-11061059

PATIENT
  Age: 83 Year
  Sex: Male

DRUGS (6)
  1. NORVASC [Concomitant]
  2. REVLIMID [Suspect]
     Indication: MULTIPLE MYELOMA
     Dosage: 25 MG, 1 IN 1 D, PO
     Route: 048
     Dates: start: 20020701
  3. HYDROXYUREA [Concomitant]
  4. COUMADIN [Concomitant]
  5. LOTROL (ALL OTHER THERAPEUTIC PRODUCTS) [Concomitant]
  6. SYNTHROID [Concomitant]

REACTIONS (1)
  - THROMBOSIS [None]
